FAERS Safety Report 19141057 (Version 4)
Quarter: 2021Q2

REPORT INFORMATION
  Report Type: Spontaneous
  Country: DE (occurrence: DE)
  Receive Date: 20210415
  Receipt Date: 20210426
  Transmission Date: 20210717
  Serious: Yes (Other)
  Sender: FDA-Public Use
  Company Number: DE-ROCHE-2811094

PATIENT
  Age: 43 Year
  Sex: Female

DRUGS (6)
  1. OCREVUS [Suspect]
     Active Substance: OCRELIZUMAB
     Indication: MULTIPLE SCLEROSIS
     Route: 042
     Dates: start: 20200401
  2. OCREVUS [Suspect]
     Active Substance: OCRELIZUMAB
     Route: 042
     Dates: start: 20201020
  3. BACLOFEN. [Concomitant]
     Active Substance: BACLOFEN
  4. GABAPENTIN. [Concomitant]
     Active Substance: GABAPENTIN
  5. CITALOPRAM [Concomitant]
     Active Substance: CITALOPRAM HYDROBROMIDE
  6. FAMPYRA [Concomitant]
     Active Substance: DALFAMPRIDINE

REACTIONS (1)
  - Multiple sclerosis relapse [Recovered/Resolved]
